FAERS Safety Report 9559219 (Version 1)
Quarter: 2013Q3

REPORT INFORMATION
  Report Type: Spontaneous
  Country: US (occurrence: None)
  Receive Date: 20130906
  Receipt Date: 20130906
  Transmission Date: 20140515
  Serious: No
  Sender: FDA-Public Use
  Company Number: 163-POMAL-13051728

PATIENT
  Age: 70 Year
  Sex: Male

DRUGS (14)
  1. POMALYST [Suspect]
     Indication: PLASMA CELL MYELOMA
     Route: 048
     Dates: start: 20130504, end: 20130506
  2. DEXAMETHASONE(DEXAMETHASONE)(UNKNOWN) :1) 1 IN 1 WK, UNK [Concomitant]
  3. COUMADIN(WARFARIN SODIUM)(UNKNOWN) [Concomitant]
  4. CARVEDILOL(CARVEDILOL)(UNKNOWN) [Concomitant]
  5. ALPHAGAN(BRIMONIDINE TARTRATE)(EYE DROPS) [Concomitant]
  6. ACYCLOVIR(ACICLOVIR)(UNKNOWN) :1) 800 MG, 2 IN 1 D, UNK [Concomitant]
  7. COLACE(DOCUSATE SODIUM)(UNKNOWN) [Concomitant]
  8. VITAMIN D3 [Suspect]
  9. MAGNESIUM(MAGNESIUM)(UNKNOWN) [Concomitant]
  10. VITAMIN B6(PYRIDOXINE HYDROCHLORIDE)(UNKNOWN) [Concomitant]
  11. ALPHALIPOIC ACID(THIOCTIC ACID)(UNKNOWN [Concomitant]
  12. GLUCOSAMINE 50(GLUCOSAMINE)(UNKNOWN) [Concomitant]
  13. CHONDROTIN(CHONDROITIN)(UNKNOWN) [Concomitant]
  14. VITMAIN B 12(CYANOCOBALAMIN)(UNKNOWN [Concomitant]

REACTIONS (2)
  - Petechiae [None]
  - Rash macular [None]
